FAERS Safety Report 6590187-7 (Version None)
Quarter: 2010Q1

REPORT INFORMATION
  Report Type: 
  Country: None (occurrence: None)
  Receive Date: 20100205
  Receipt Date: 20100128
  Transmission Date: 20100710
  Serious: Yes (Life-Threatening, Hospitalization)
  Sender: FDA-Public Use
  Company Number: 238272K09USA

PATIENT
  Age: 61 Year
  Sex: Female

DRUGS (5)
  1. REBIF [Suspect]
     Indication: MULTIPLE SCLEROSIS
     Dosage: 44 MCG, 3 IN 1 WEEKS, SUBCUTANEOUS
     Route: 058
     Dates: start: 20060731, end: 20090401
  2. MORPHINE [Suspect]
     Indication: PROCEDURAL PAIN
     Dosage: NOT REPORTED
     Dates: start: 20090401, end: 20090401
  3. MYCARDIS HCT (PRITOR /01506701/) [Concomitant]
  4. LEVOTHROID [Concomitant]
  5. OXYCODONE HCL [Concomitant]

REACTIONS (8)
  - CLOSTRIDIAL INFECTION [None]
  - COLONIC STENOSIS [None]
  - DEPRESSED LEVEL OF CONSCIOUSNESS [None]
  - DIVERTICULITIS [None]
  - OVARIAN CYST [None]
  - OVERDOSE [None]
  - PROCEDURAL PAIN [None]
  - SCAR [None]
